FAERS Safety Report 24652246 (Version 1)
Quarter: 2024Q4

REPORT INFORMATION
  Report Type: Spontaneous
  Country: US (occurrence: None)
  Receive Date: 20241121
  Receipt Date: 20241121
  Transmission Date: 20250115
  Serious: Yes (Death, Hospitalization)
  Sender: Public
  Company Number: None

PATIENT
  Age: 90 Year
  Sex: Male

DRUGS (1)
  1. LENALIDOMIDE [Suspect]
     Active Substance: LENALIDOMIDE
     Indication: Follicular lymphoma stage I
     Dosage: FREQUENCY : DAILY;?
     Route: 048
     Dates: start: 20200707, end: 20241017

REACTIONS (4)
  - Renal impairment [None]
  - Cellulitis [None]
  - Malaise [None]
  - Dysphagia [None]

NARRATIVE: CASE EVENT DATE: 20241121
